FAERS Safety Report 22095621 (Version 2)
Quarter: 2023Q1

REPORT INFORMATION
  Report Type: Report from Study
  Country: ID (occurrence: ID)
  Receive Date: 20230314
  Receipt Date: 20230315
  Transmission Date: 20230418
  Serious: Yes (Other)
  Sender: FDA-Public Use
  Company Number: ID-PFIZER INC-PV202300044829

PATIENT
  Age: 26 Year
  Sex: Male

DRUGS (1)
  1. PEGVISOMANT [Suspect]
     Active Substance: PEGVISOMANT
     Dosage: UNK

REACTIONS (2)
  - Sepsis [Unknown]
  - Cholelithiasis [Unknown]
